FAERS Safety Report 25856267 (Version 1)
Quarter: 2025Q3

REPORT INFORMATION
  Report Type: Report from Study
  Country: US (occurrence: US)
  Receive Date: 20250928
  Receipt Date: 20250928
  Transmission Date: 20251021
  Serious: Yes (Hospitalization)
  Sender: SERVIER
  Company Number: US-SERVIER-S25013834

PATIENT

DRUGS (1)
  1. TIBSOVO [Suspect]
     Active Substance: IVOSIDENIB
     Indication: Cholangiocarcinoma
     Dosage: 500 MG, QD
     Route: 048
     Dates: start: 20250821, end: 20250910

REACTIONS (2)
  - Gastrointestinal infection [Recovering/Resolving]
  - Bacteraemia [Recovering/Resolving]

NARRATIVE: CASE EVENT DATE: 20250910
